FAERS Safety Report 6159038-9 (Version None)
Quarter: 2009Q2

REPORT INFORMATION
  Report Type: 
  Country: None (occurrence: None)
  Receive Date: 20090417
  Receipt Date: 20090409
  Transmission Date: 20091009
  Serious: Yes (Other)
  Sender: FDA-Public Use
  Company Number: US-PFIZER INC-2009173850

PATIENT
  Sex: Male

DRUGS (1)
  1. SUTENT [Suspect]
     Dosage: 50 MG, 4 WEEKS ON AND 2 WEEKS OFF
     Route: 048
     Dates: start: 20090201

REACTIONS (1)
  - LYMPHADENOPATHY [None]
